FAERS Safety Report 7834422-3 (Version None)
Quarter: 2011Q4

REPORT INFORMATION
  Report Type: 
  Country: None (occurrence: None)
  Receive Date: 20111024
  Receipt Date: 20111019
  Transmission Date: 20120403
  Serious: Yes (Death)
  Sender: FDA-Public Use
  Company Number: TN-SANOFI-AVENTIS-2011SA069112

PATIENT
  Age: 74 Year
  Sex: Male

DRUGS (15)
  1. ALDACTONE [Concomitant]
     Route: 048
     Dates: end: 20110922
  2. CORVASAL [Concomitant]
     Route: 048
     Dates: end: 20110922
  3. IRBESARTAN [Concomitant]
     Route: 048
     Dates: end: 20110922
  4. ASPEGIC 325 [Concomitant]
     Route: 048
     Dates: end: 20110922
  5. LASIX [Concomitant]
     Route: 048
     Dates: end: 20110922
  6. ALFUZOSIN HCL [Concomitant]
     Route: 048
     Dates: end: 20110922
  7. NEXIUM [Concomitant]
     Route: 048
     Dates: end: 20110922
  8. XALATAN [Concomitant]
     Dates: end: 20110922
  9. VESSEL DUE [Concomitant]
     Route: 048
     Dates: end: 20110922
  10. PLAVIX [Suspect]
     Indication: ACUTE CORONARY SYNDROME
     Route: 048
     Dates: start: 20101001, end: 20110922
  11. PLAVIX [Suspect]
     Indication: STENT PLACEMENT
     Route: 048
     Dates: start: 20101001, end: 20110922
  12. INSULATARD NPH HUMAN [Concomitant]
     Route: 058
     Dates: end: 20110922
  13. ALPHAGAN [Concomitant]
     Dates: end: 20110922
  14. MOXONIDINE [Concomitant]
     Route: 048
     Dates: end: 20110922
  15. LESCOL [Concomitant]
     Route: 048
     Dates: end: 20110922

REACTIONS (1)
  - CONDITION AGGRAVATED [None]
